FAERS Safety Report 8714912 (Version 4)
Quarter: 2012Q4

REPORT INFORMATION
  Report Type: 
  Country: AT (occurrence: AT)
  Receive Date: 20120809
  Receipt Date: 20121212
  Transmission Date: 20130627
  Serious: Yes (Death, Hospitalization, Other)
  Sender: FDA-Public Use
  Company Number: AT-CELGENEUS-009-20785-11080359

PATIENT

DRUGS (10)
  1. THALIDOMIDE [Suspect]
     Indication: BRAIN TUMOR
     Dosage: 3 milligram/kilogram
     Route: 048
  2. THALIDOMIDE [Suspect]
     Dosage: 1.5-8 mg/kg (after starting dose of 3mg/kg)
     Route: 048
  3. FENOFIBRATE [Concomitant]
     Indication: BRAIN TUMOR
     Dosage: or 90 mg/m2
     Route: 048
  4. BEVACIZUMAB [Concomitant]
     Indication: BRAIN TUMOR
     Dosage: 10 mg/kg
     Route: 041
  5. ETOPOSIDE [Concomitant]
     Indication: BRAIN TUMOR
     Dosage: 10-50 mg/m2
     Route: 048
  6. CYCLOPHOSPHAMIDE [Concomitant]
     Indication: BRAIN TUMOR
     Dosage: 0.5-2.5 mg/kg
     Route: 065
  7. CELECOXIB [Concomitant]
     Indication: BRAIN TUMOR
     Dosage: 50-400 mg
     Route: 048
  8. CYTARABINE [Concomitant]
     Indication: BRAIN TUMOR
     Dosage: 25 mg to 50 mg
     Route: 037
  9. DEXAMETHASONE [Concomitant]
     Indication: PROPHYLAXIS
     Route: 048
  10. TOPOSIDE [Concomitant]
     Indication: BRAIN TUMOR
     Dosage: .5 Milligram
     Route: 037

REACTIONS (21)
  - Accident [Fatal]
  - Paraparesis [Unknown]
  - Intracranial pressure increased [Recovered/Resolved]
  - Death [Fatal]
  - Brain neoplasm [Fatal]
  - Venous thrombosis [Unknown]
  - Pneumonia [Unknown]
  - Neutropenia [Unknown]
  - Brain cancer metastatic [Unknown]
  - Decubitus ulcer [Unknown]
  - Nerve conduction studies abnormal [Unknown]
  - Immunoglobulins decreased [Unknown]
  - Hypertonia [Unknown]
  - Proteinuria [Unknown]
  - Hypothyroidism [Unknown]
  - Haematuria [Unknown]
  - Bradycardia [Unknown]
  - Headache [Unknown]
  - Thrombocytopenia [Unknown]
  - Lymphopenia [Unknown]
  - Neuropathy peripheral [Unknown]
